FAERS Safety Report 6424041-8 (Version None)
Quarter: 2009Q4

REPORT INFORMATION
  Report Type: 
  Country: None (occurrence: None)
  Receive Date: 20091102
  Receipt Date: 20091021
  Transmission Date: 20100525
  Serious: Yes (Death, Hospitalization, Other)
  Sender: FDA-Public Use
  Company Number: AU-PFIZER INC-2009245592

PATIENT
  Age: 55 Year
  Sex: Male
  Weight: 74 kg

DRUGS (7)
  1. VORICONAZOLE [Suspect]
     Indication: SCEDOSPORIUM INFECTION
     Dosage: 200 MG, 2X/DAY
     Route: 048
     Dates: start: 20090215
  2. VORICONAZOLE [Suspect]
     Dosage: 200 MG, 3X/DAY
     Dates: end: 20090909
  3. VORICONAZOLE [Suspect]
     Route: 042
  4. IMURAN [Concomitant]
     Indication: IMMUNOSUPPRESSION
     Dosage: 500 MG, 1X/DAY
     Route: 048
  5. PREDNISOLONE [Concomitant]
     Indication: IMMUNOSUPPRESSION
     Dosage: 10 MG, 1X/DAY
     Route: 048
  6. INSULIN LISPRO [Concomitant]
     Indication: DIABETES MELLITUS
     Dosage: 20 IU, 1X/DAY
  7. INSULIN DETEMIR [Concomitant]
     Indication: DIABETES MELLITUS
     Dosage: 8 IU, 1X/DAY

REACTIONS (8)
  - CONVULSION [None]
  - DRUG LEVEL DECREASED [None]
  - FUNGAL INFECTION [None]
  - INTESTINAL INFARCTION [None]
  - MESENTERIC OCCLUSION [None]
  - NEUROTOXICITY [None]
  - POLYOMAVIRUS-ASSOCIATED NEPHROPATHY [None]
  - SCEDOSPORIUM INFECTION [None]
